FAERS Safety Report 17649419 (Version 2)
Quarter: 2020Q2

REPORT INFORMATION
  Report Type: Report from Study
  Country: CO (occurrence: CO)
  Receive Date: 20200409
  Receipt Date: 20200512
  Transmission Date: 20200713
  Serious: Yes (Other)
  Sender: FDA-Public Use
  Company Number: CO-SA-2019SA303487

PATIENT
  Age: 37 Year
  Sex: Female

DRUGS (1)
  1. ALEMTUZUMAB [Suspect]
     Active Substance: ALEMTUZUMAB
     Indication: MULTIPLE SCLEROSIS
     Dosage: 12 MG, QD (DURING 3 DAYS)
     Route: 041
     Dates: start: 20191029, end: 20191031

REACTIONS (19)
  - Haematochezia [Recovered/Resolved]
  - Vomiting [Unknown]
  - Pain in extremity [Recovered/Resolved]
  - White blood cell count decreased [Recovered/Resolved]
  - Gastroenteritis bacterial [Unknown]
  - Spinal pain [Recovered/Resolved]
  - Lymphocyte count decreased [Not Recovered/Not Resolved]
  - Hypoaesthesia [Recovered/Resolved]
  - Red blood cells urine [Not Recovered/Not Resolved]
  - Aspartate aminotransferase increased [Not Recovered/Not Resolved]
  - Abdominal pain [Unknown]
  - Blood thyroid stimulating hormone increased [Unknown]
  - Nitrite urine present [Recovered/Resolved]
  - Haemorrhage [Recovered/Resolved]
  - Headache [Recovered/Resolved]
  - Hypothermia [Unknown]
  - Haematemesis [Recovered/Resolved]
  - Abdominal discomfort [Unknown]
  - Gastroenteritis viral [Recovered/Resolved]

NARRATIVE: CASE EVENT DATE: 20191029
